FAERS Safety Report 9709209 (Version 2)
Quarter: 2013Q4

REPORT INFORMATION
  Report Type: Spontaneous
  Country: CN (occurrence: CN)
  Receive Date: 20131125
  Receipt Date: 20131205
  Transmission Date: 20140711
  Serious: Yes (Death, Other)
  Sender: FDA-Public Use
  Company Number: PHHY2013CN133667

PATIENT
  Age: 35 Year
  Sex: Male

DRUGS (2)
  1. BROMOCRIPTINE [Suspect]
     Indication: PROLACTINOMA
     Dosage: 5 MG, BID
  2. BROMOCRIPTINE [Suspect]
     Dosage: 5 MG, TID

REACTIONS (11)
  - Completed suicide [Fatal]
  - Psychotic disorder [Unknown]
  - Depression [Unknown]
  - Dysaesthesia [Unknown]
  - Delusion [Unknown]
  - Hallucination [Unknown]
  - Blood sodium decreased [Unknown]
  - Blood chloride decreased [Unknown]
  - Nervousness [Unknown]
  - Irritability [Unknown]
  - Drug ineffective [Unknown]
